FAERS Safety Report 20640607 (Version 1)
Quarter: 2022Q1

REPORT INFORMATION
  Report Type: Spontaneous
  Country: US (occurrence: US)
  Receive Date: 20220327
  Receipt Date: 20220327
  Transmission Date: 20220424
  Serious: No
  Sender: FDA-Public Use
  Company Number: US-SANOFI-01025572

PATIENT
  Sex: Male

DRUGS (4)
  1. LEMTRADA [Suspect]
     Active Substance: ALEMTUZUMAB
     Dosage: UNK
     Dates: start: 2016
  2. LEMTRADA [Suspect]
     Active Substance: ALEMTUZUMAB
     Dosage: UNK
     Dates: start: 2017
  3. LEMTRADA [Suspect]
     Active Substance: ALEMTUZUMAB
     Dosage: UNK
     Dates: start: 2020
  4. ACYCLOVIR [Concomitant]
     Active Substance: ACYCLOVIR

REACTIONS (3)
  - CD4 lymphocytes decreased [Recovering/Resolving]
  - CD8 lymphocytes decreased [Recovering/Resolving]
  - Off label use [Unknown]
